FAERS Safety Report 9275160 (Version 1)
Quarter: 2013Q2

REPORT INFORMATION
  Report Type: Spontaneous
  Country: US (occurrence: US)
  Receive Date: 20130507
  Receipt Date: 20130507
  Transmission Date: 20140414
  Serious: No
  Sender: FDA-Public Use
  Company Number: US-JNJFOC-20130500016

PATIENT
  Sex: Male
  Weight: 81.65 kg

DRUGS (5)
  1. DURAGESIC [Suspect]
     Indication: POST LAMINECTOMY SYNDROME
     Dosage: ONE 25 UG/HR AND ONE 50 UG/HR
     Route: 062
     Dates: start: 2005
  2. DURAGESIC [Suspect]
     Indication: POST LAMINECTOMY SYNDROME
     Route: 062
  3. DURAGESIC [Suspect]
     Indication: POST LAMINECTOMY SYNDROME
     Route: 062
  4. LYRICA [Concomitant]
     Indication: NEUROPATHY PERIPHERAL
     Dosage: ONE 25 UG/HR AND ONE 50 UG/HR
     Route: 048
     Dates: start: 2006
  5. CYMBALTA [Concomitant]
     Indication: NEUROPATHY PERIPHERAL
     Dosage: ONE 25 UG/HR AND ONE 50 UG/HR
     Route: 048
     Dates: start: 2006

REACTIONS (4)
  - Product quality issue [Unknown]
  - Wrong technique in drug usage process [Unknown]
  - Product quality issue [Unknown]
  - Poor quality drug administered [Unknown]
